FAERS Safety Report 6871181-5 (Version None)
Quarter: 2010Q3

REPORT INFORMATION
  Report Type: 
  Country: None (occurrence: None)
  Receive Date: 20100723
  Receipt Date: 20100712
  Transmission Date: 20110219
  Serious: Yes (Hospitalization, Other)
  Sender: FDA-Public Use
  Company Number: US-PFIZER INC-2010041947

PATIENT
  Sex: Male

DRUGS (6)
  1. CHANTIX [Suspect]
     Indication: SMOKING CESSATION THERAPY
     Dosage: UNK
     Dates: start: 20080501, end: 20080701
  2. ATRIPLA [Concomitant]
     Indication: HIV INFECTION
     Dosage: UNK
     Dates: start: 20060101
  3. LUNESTA [Concomitant]
     Indication: SLEEP DISORDER
     Dosage: UNK
     Dates: start: 20020101
  4. FLEXERIL [Concomitant]
     Indication: NEUROPATHY PERIPHERAL
     Dosage: UNK
     Dates: start: 20070101
  5. LOPERAMIDE [Concomitant]
     Indication: DYSPEPSIA
     Dosage: UNK
     Dates: start: 20040101, end: 20090101
  6. PROVENTIL TABLET [Concomitant]
     Indication: ASTHMA
     Dosage: UNK
     Dates: start: 19800101

REACTIONS (11)
  - AGGRESSION [None]
  - ANXIETY [None]
  - BIPOLAR DISORDER [None]
  - COGNITIVE DISORDER [None]
  - CONFUSIONAL STATE [None]
  - DEPRESSION [None]
  - HALLUCINATION [None]
  - MENTAL DISORDER [None]
  - PRESENILE DEMENTIA [None]
  - PSYCHOTIC DISORDER [None]
  - SUICIDE ATTEMPT [None]
